FAERS Safety Report 6870028-0 (Version None)
Quarter: 2010Q3

REPORT INFORMATION
  Report Type: 
  Country: None (occurrence: None)
  Receive Date: 20100722
  Receipt Date: 20100712
  Transmission Date: 20110219
  Serious: Yes (Death, Hospitalization, Other)
  Sender: FDA-Public Use
  Company Number: CO-PFIZER INC-2010088055

PATIENT
  Age: 87 Year
  Sex: Male

DRUGS (7)
  1. LIPITOR [Suspect]
     Indication: BLOOD CHOLESTEROL INCREASED
     Dosage: 10 MG, 1X/DAY
     Route: 048
     Dates: start: 20040520, end: 20100120
  2. NEURONTIN [Suspect]
     Indication: NEURALGIA
     Dosage: 400 MG, 1X/DAY
     Route: 048
     Dates: start: 20040520, end: 20100120
  3. INSULIN [Concomitant]
     Indication: DIABETES MELLITUS
     Dosage: 15 IU, UNK
     Dates: start: 19950101
  4. GLUCOPHAGE XR [Concomitant]
     Dosage: UNK, ONCE DAILY
  5. AMITRIPTYLINE [Concomitant]
     Indication: SLEEP DISORDER
     Dosage: UNK, ONCE DAILY
  6. SITAGLIPTIN [Concomitant]
     Indication: DIABETES MELLITUS
     Dosage: UNK,  NCE DAILY
  7. CILOSTAZOL [Concomitant]
     Indication: CARDIOVASCULAR DISORDER
     Dosage: 50, ONCE DAILY

REACTIONS (3)
  - INFARCTION [None]
  - LUNG DISORDER [None]
  - RENAL DISORDER [None]
